FAERS Safety Report 8772905 (Version 1)
Quarter: 2012Q4

REPORT INFORMATION
  Report Type: 
  Country: US (occurrence: US)
  Receive Date: 20120907
  Receipt Date: 20120907
  Transmission Date: 20130627
  Serious: Yes (Other)
  Sender: FDA-Public Use
  Company Number: US-PAR PHARMACEUTICAL, INC-2012SCPR004607

PATIENT

DRUGS (6)
  1. BUPROPION HCL XL [Suspect]
     Indication: MATERNAL EXPOSURE DURING PREGNANCY
     Dosage: UNK UNK, Unknown
     Route: 064
  2. LITHIUM [Suspect]
     Indication: MATERNAL EXPOSURE DURING PREGNANCY
     Dosage: UNK UNK, Unknown
     Route: 064
  3. LEVOTHYROXINE [Concomitant]
     Indication: MATERNAL EXPOSURE DURING PREGNANCY
     Dosage: UNK UNK, Unknown
     Route: 064
  4. VITAMINS NOS [Concomitant]
     Indication: MATERNAL EXPOSURE DURING PREGNANCY
     Dosage: UNK, Unknown
     Route: 064
  5. CALCIUM [Concomitant]
     Indication: MATERNAL EXPOSURE DURING PREGNANCY
     Dosage: UNK, Unknown
     Route: 064
  6. FISH OIL [Concomitant]
     Indication: MATERNAL EXPOSURE DURING PREGNANCY
     Dosage: UNK, Unknown
     Route: 064

REACTIONS (4)
  - Foetal exposure during pregnancy [Unknown]
  - Hypotonia [Unknown]
  - Feeding disorder neonatal [Recovered/Resolved]
  - Poor weight gain neonatal [Recovered/Resolved]
